FAERS Safety Report 9562807 (Version 4)
Quarter: 2013Q4

REPORT INFORMATION
  Report Type: Spontaneous
  Country: JP (occurrence: JP)
  Receive Date: 20130927
  Receipt Date: 20131126
  Transmission Date: 20140711
  Serious: Yes (Hospitalization)
  Sender: FDA-Public Use
  Company Number: JP-BRISTOL-MYERS SQUIBB COMPANY-19139708

PATIENT
  Age: 79 Year
  Sex: Male
  Weight: 53.75 kg

DRUGS (15)
  1. ERBITUX SOLN FOR INF 5MG/ML [Suspect]
     Indication: PHARYNGEAL CANCER
     Dosage: 250MG/M2 (1/1/WK) ONCE?600 MG,L IN 1 WK.?280 MG,L IN 1 WK.?30MAY13-30MAY13.?06JUN13 -STOPPED
     Route: 041
     Dates: start: 20130530
  2. BAYASPIRIN [Suspect]
     Dosage: TAB
     Route: 048
  3. HANGE-SHASHIN-TO [Suspect]
     Indication: STOMATITIS
     Route: 048
     Dates: start: 20130528, end: 20130710
  4. FENTANYL CITRATE [Suspect]
     Indication: ANALGESIC THERAPY
     Dosage: ONGOING
     Route: 062
     Dates: start: 20130624
  5. LOXONIN [Suspect]
     Indication: ANALGESIC THERAPY
     Dosage: TABLET.
     Route: 048
     Dates: start: 20130619, end: 20130705
  6. CALONAL [Suspect]
     Indication: ANALGESIC THERAPY
     Route: 048
     Dates: start: 20130705
  7. MINOMYCIN [Concomitant]
     Indication: PROPHYLAXIS
     Dosage: CAPSULE.?06JUN13,DOSAGE REDUCED TO 280MG.
     Route: 048
     Dates: start: 20130530, end: 20130620
  8. LASIX [Concomitant]
     Route: 048
  9. PURSENNID [Concomitant]
     Dosage: TABLET.
     Route: 048
  10. CINACALCET HCL [Concomitant]
     Route: 048
  11. GASTER [Concomitant]
     Route: 048
  12. SELBEX [Concomitant]
     Route: 048
  13. TRANSAMIN [Concomitant]
     Route: 048
  14. LIPITOR [Concomitant]
     Route: 048
  15. ROCALTROL [Concomitant]
     Route: 048

REACTIONS (2)
  - Interstitial lung disease [Recovering/Resolving]
  - Gastric ulcer [Recovered/Resolved]
